FAERS Safety Report 9922484 (Version 1)
Quarter: 2014Q1

REPORT INFORMATION
  Report Type: Spontaneous
  Country: US (occurrence: None)
  Receive Date: 20140224
  Receipt Date: 20140224
  Transmission Date: 20141002
  Serious: No
  Sender: FDA-Public Use
  Company Number: None

PATIENT
  Age: 3 Year
  Sex: Male

DRUGS (1)
  1. CETIRIZINE [Suspect]
     Indication: ALLERGY PROPHYLAXIS
     Route: 048

REACTIONS (6)
  - Confusional state [None]
  - Somnolence [None]
  - Staring [None]
  - Disorientation [None]
  - Screaming [None]
  - Disturbance in attention [None]
